FAERS Safety Report 24293898 (Version 1)
Quarter: 2024Q3

REPORT INFORMATION
  Report Type: Spontaneous
  Country: US (occurrence: None)
  Receive Date: 20240906
  Receipt Date: 20240906
  Transmission Date: 20241017
  Serious: No
  Sender: DOMPE FARMACEUTICI
  Company Number: US-FARMAPROD-202308-202403-0792

PATIENT
  Age: 80 Year
  Sex: Female
  Weight: 80.74 kg

DRUGS (20)
  1. OXERVATE [Suspect]
     Active Substance: CENEGERMIN-BKBJ
     Indication: Neurotrophic keratopathy
     Route: 047
     Dates: start: 20240305
  2. CYANOCOBALAMIN [Concomitant]
     Active Substance: CYANOCOBALAMIN
  3. SYSTANE HYDRATION PF PRESERVATIVE FREE [Concomitant]
     Active Substance: POLYETHYLENE GLYCOL 400\PROPYLENE GLYCOL
     Dosage: PRESERVATIVE FREE
  4. ALLEGRA ALLERGY [Concomitant]
     Active Substance: FEXOFENADINE HYDROCHLORIDE
  5. TYLENOL [Concomitant]
     Active Substance: ACETAMINOPHEN
  6. NYSTATIN [Concomitant]
     Active Substance: NYSTATIN
  7. SYNTHROID [Concomitant]
     Active Substance: LEVOTHYROXINE SODIUM
  8. ELIQUIS [Concomitant]
     Active Substance: APIXABAN
  9. ALLOPURINOL [Concomitant]
     Active Substance: ALLOPURINOL
  10. DIGOXIN [Concomitant]
     Active Substance: DIGOXIN
  11. TYLENOL ARTHRITIS PAIN [Concomitant]
     Active Substance: ACETAMINOPHEN
     Dosage: SUSTAINED ADMINISTRATION
  12. METFORMIN HYDROCHLORIDE [Concomitant]
     Active Substance: METFORMIN HYDROCHLORIDE
  13. HYDROCHLOROTHIAZIDE [Concomitant]
     Active Substance: HYDROCHLOROTHIAZIDE
  14. VITAMIN D3 [Concomitant]
     Active Substance: CHOLECALCIFEROL
  15. DEXTROMETHORPHAN HYDROBROMIDE\GUAIFENESIN [Concomitant]
     Active Substance: DEXTROMETHORPHAN HYDROBROMIDE\GUAIFENESIN
     Dosage: 1200 MG-60 MG
  16. HYDRALAZINE HCL [Concomitant]
     Active Substance: HYDRALAZINE HYDROCHLORIDE
  17. METOPROLOL SUCCINATE [Concomitant]
     Active Substance: METOPROLOL SUCCINATE
  18. KLOR-CON [Concomitant]
     Active Substance: POTASSIUM CHLORIDE
     Dosage: 10 MEQ ,SUSTAINED ADMINISTRATION
  19. LOSARTAN POTASSIUM [Concomitant]
     Active Substance: LOSARTAN POTASSIUM
  20. FUROSEMIDE [Concomitant]
     Active Substance: FUROSEMIDE

REACTIONS (3)
  - Wrong technique in product usage process [Unknown]
  - Underdose [Unknown]
  - Eye pain [Recovered/Resolved]

NARRATIVE: CASE EVENT DATE: 20240305
